FAERS Safety Report 7194669-9 (Version None)
Quarter: 2010Q4

REPORT INFORMATION
  Report Type: 
  Country: None (occurrence: None)
  Receive Date: 20101223
  Receipt Date: 20101214
  Transmission Date: 20110411
  Serious: Yes (Hospitalization)
  Sender: FDA-Public Use
  Company Number: US-WATSON-2010-16342

PATIENT
  Age: 85 Year
  Sex: Male

DRUGS (5)
  1. DILTIA XT (WATSON LABORATORIES) [Suspect]
     Indication: SUPRAVENTRICULAR TACHYCARDIA
     Dosage: UNK
  2. FENTANYL CITRATE [Suspect]
     Indication: METASTATIC PAIN
     Dosage: 75 MCG/HR X2DAYS, THEN DECR TO 25 MCG/HR
     Route: 042
  3. FENTANYL CITRATE [Suspect]
     Indication: BACK PAIN
  4. FENTANYL-75 [Suspect]
     Indication: METASTATIC PAIN
     Dosage: 150 MCG EVERY 72 HR
     Route: 062
  5. FENTANYL-75 [Suspect]
     Indication: BACK PAIN

REACTIONS (2)
  - DELIRIUM [None]
  - DRUG INTERACTION [None]
